FAERS Safety Report 17682827 (Version 2)
Quarter: 2020Q2

REPORT INFORMATION
  Report Type: Spontaneous
  Country: JP (occurrence: JP)
  Receive Date: 20200419
  Receipt Date: 20200512
  Transmission Date: 20200714
  Serious: Yes (Other)
  Sender: FDA-Public Use
  Company Number: JP-BRISTOL-MYERS SQUIBB COMPANY-BMS-2020-030858

PATIENT
  Age: 8 Decade
  Sex: Male
  Weight: 56 kg

DRUGS (1)
  1. KENACORT-A [Suspect]
     Active Substance: TRIAMCINOLONE ACETONIDE
     Indication: RHEUMATOID ARTHRITIS
     Dosage: 40 MILLIGRAM
     Route: 065
     Dates: start: 20191225

REACTIONS (18)
  - Angina pectoris [Unknown]
  - Toothache [Unknown]
  - Pain in extremity [Unknown]
  - Myocardial infarction [Unknown]
  - Weight decreased [Unknown]
  - Burning sensation [Unknown]
  - Chest pain [Unknown]
  - Joint injury [Unknown]
  - Blood pressure increased [Unknown]
  - Administration site atrophy [Unknown]
  - Extremity contracture [Unknown]
  - Dry mouth [Unknown]
  - Tendon rupture [Unknown]
  - Muscle atrophy [Unknown]
  - Constipation [Not Recovered/Not Resolved]
  - Musculoskeletal stiffness [Unknown]
  - Musculoskeletal discomfort [Unknown]
  - Head discomfort [Unknown]

NARRATIVE: CASE EVENT DATE: 202002
